FAERS Safety Report 7435028-0 (Version None)
Quarter: 2011Q2

REPORT INFORMATION
  Report Type: 
  Country: None (occurrence: None)
  Receive Date: 20110418
  Receipt Date: 20110414
  Transmission Date: 20111010
  Serious: Yes (Other)
  Sender: FDA-Public Use
  Company Number: 1000020161

PATIENT
  Age: 76 Year
  Sex: Male

DRUGS (5)
  1. VITAMINS NOS (VITAMINS NOS)(VITAMINS NOS) [Concomitant]
  2. NAMENDA [Suspect]
     Indication: DEMENTIA
     Dosage: 10 MG (5 MG,2 IN 1 D),ORAL, 5 MG (5 MG, 1 IN 1 D),ORAL
     Dates: start: 20110101, end: 20110409
  3. MINERALS NOS (MINERALS NOS)(MINERALS NOS) [Concomitant]
  4. NAMENDA [Suspect]
     Indication: DEMENTIA
     Dosage: 5 MG (5 MG, 1 IN 1 D),ORAL
     Route: 048
     Dates: start: 20110328, end: 20110101
  5. SINGULAIR (MONTELUKAST) (TABLETS) (MONTELUKAST) [Concomitant]

REACTIONS (3)
  - ROAD TRAFFIC ACCIDENT [None]
  - IMPAIRED DRIVING ABILITY [None]
  - HALLUCINATION, VISUAL [None]
